FAERS Safety Report 4575940-3 (Version None)
Quarter: 2005Q1

REPORT INFORMATION
  Report Type: 
  Country: None (occurrence: None)
  Receive Date: 20050209
  Receipt Date: 20050202
  Transmission Date: 20050727
  Serious: Yes (Death, Other)
  Sender: FDA-Public Use
  Company Number: US-JNJFOC-20050200663

PATIENT
  Sex: Female

DRUGS (1)
  1. DURAGESIC [Suspect]

REACTIONS (7)
  - ABNORMAL BEHAVIOUR [None]
  - COMA [None]
  - DEATH [None]
  - HYPERCOAGULATION [None]
  - HYPOXIA [None]
  - OVERDOSE [None]
  - RESPIRATORY FAILURE [None]
